FAERS Safety Report 8479479-4 (Version None)
Quarter: 2012Q2

REPORT INFORMATION
  Report Type: 
  Country: None (occurrence: None)
  Receive Date: 20120629
  Receipt Date: 20120620
  Transmission Date: 20120825
  Serious: Yes (Hospitalization, Other)
  Sender: FDA-Public Use
  Company Number: JP-PFIZER INC-2012155591

PATIENT
  Age: 84 Year
  Sex: Male

DRUGS (6)
  1. ESTRACYT [Suspect]
     Indication: PROSTATE CANCER
     Dosage: 313.4 MG/DAY
     Route: 048
     Dates: start: 20110308, end: 20111111
  2. BUFFERIN [Concomitant]
     Dosage: 81 MG, UNK
     Dates: start: 20110308
  3. ESTRACYT [Suspect]
     Dosage: UNK
     Route: 048
     Dates: start: 20111112, end: 20111209
  4. FENTANYL-100 [Concomitant]
     Dosage: UNK
     Dates: start: 20110308
  5. OPALMON [Concomitant]
     Dosage: UNK
     Dates: start: 20110308
  6. URIEF [Concomitant]
     Dosage: UNK
     Dates: start: 20110308

REACTIONS (1)
  - PANCYTOPENIA [None]
